FAERS Safety Report 13527814 (Version 2)
Quarter: 2017Q2

REPORT INFORMATION
  Report Type: Spontaneous
  Country: US (occurrence: US)
  Receive Date: 20170509
  Receipt Date: 20170526
  Transmission Date: 20170830
  Serious: No
  Sender: FDA-Public Use
  Company Number: US-PFIZER INC-2017192657

PATIENT
  Age: 62 Year
  Sex: Male

DRUGS (1)
  1. NORVASC [Suspect]
     Active Substance: AMLODIPINE BESYLATE
     Indication: HYPERTENSION
     Dosage: UNK
     Dates: start: 2011

REACTIONS (4)
  - Headache [Unknown]
  - Treatment noncompliance [Unknown]
  - Drug hypersensitivity [Unknown]
  - Hypertension [Unknown]
